FAERS Safety Report 16912051 (Version 2)
Quarter: 2019Q4

REPORT INFORMATION
  Report Type: Spontaneous
  Country: FR (occurrence: FR)
  Receive Date: 20191014
  Receipt Date: 20191220
  Transmission Date: 20200122
  Serious: Yes (Other)
  Sender: FDA-Public Use
  Company Number: FR-US-PROVELL PHARMACEUTICALS LLC-E2B_90071239

PATIENT
  Age: 57 Year
  Sex: Female

DRUGS (3)
  1. LEVOTHYROX NF [Suspect]
     Active Substance: LEVOTHYROXINE SODIUM
     Indication: PRODUCT USED FOR UNKNOWN INDICATION
     Dosage: 75 (UNSPECIFIED UNITS)
  2. LEVOTHYROX NF [Suspect]
     Active Substance: LEVOTHYROXINE SODIUM
     Dosage: DOSAGE INCREASED
  3. JANUVIA [Concomitant]
     Active Substance: SITAGLIPTIN PHOSPHATE
     Indication: PRODUCT USED FOR UNKNOWN INDICATION
     Dates: start: 2019

REACTIONS (12)
  - Food poisoning [Unknown]
  - Headache [Unknown]
  - Blood pressure increased [Unknown]
  - Amnesia [Unknown]
  - Abdominal pain upper [Unknown]
  - Vomiting [Unknown]
  - Tremor [Unknown]
  - Dyspepsia [Unknown]
  - Loss of consciousness [Unknown]
  - Blood thyroid stimulating hormone increased [Recovered/Resolved]
  - Balance disorder [Unknown]
  - Nausea [Unknown]

NARRATIVE: CASE EVENT DATE: 2019
